FAERS Safety Report 19470921 (Version 1)
Quarter: 2021Q2

REPORT INFORMATION
  Report Type: Report from Study
  Country: None (occurrence: US)
  Receive Date: 20210629
  Receipt Date: 20210629
  Transmission Date: 20210717
  Serious: Yes (Other)
  Sender: FDA-Public Use
  Company Number: US-ABBVIE-20K-163-3675826-00

PATIENT
  Age: 90 Year
  Sex: Male

DRUGS (3)
  1. HUMIRA [Suspect]
     Active Substance: ADALIMUMAB
     Indication: CROHN^S DISEASE
     Route: 058
  2. HUMIRA [Suspect]
     Active Substance: ADALIMUMAB
     Indication: CROHN^S DISEASE
     Dosage: CITRATE FREE
     Route: 058
     Dates: start: 2017
  3. HUMIRA [Suspect]
     Active Substance: ADALIMUMAB
     Indication: RHEUMATOID ARTHRITIS
     Dosage: CITRATE FREE
     Route: 058

REACTIONS (10)
  - Macular degeneration [Not Recovered/Not Resolved]
  - Hypoacusis [Not Recovered/Not Resolved]
  - Dysuria [Not Recovered/Not Resolved]
  - Visual impairment [Not Recovered/Not Resolved]
  - Prostate cancer [Not Recovered/Not Resolved]
  - Skin cancer [Not Recovered/Not Resolved]
  - Haematuria [Not Recovered/Not Resolved]
  - Bladder disorder [Not Recovered/Not Resolved]
  - Haemorrhage [Recovered/Resolved]
  - Ingrowing nail [Recovered/Resolved]

NARRATIVE: CASE EVENT DATE: 2020
